FAERS Safety Report 16882790 (Version 10)
Quarter: 2020Q4

REPORT INFORMATION
  Report Type: Spontaneous
  Country: PL (occurrence: PL)
  Receive Date: 20191003
  Receipt Date: 20201231
  Transmission Date: 20210113
  Serious: Yes (Hospitalization, Other)
  Sender: FDA-Public Use
  Company Number: PL-AUROBINDO-AUR-APL-2019-063829

PATIENT
  Age: 80 Year
  Sex: Female

DRUGS (13)
  1. VALSARTAN. [Suspect]
     Active Substance: VALSARTAN
     Indication: PULMONARY HYPERTENSION
     Dosage: 80 MILLIGRAM, ONCE A DAY
     Route: 065
  2. TORASEMIDE [Suspect]
     Active Substance: TORSEMIDE
     Indication: DIURETIC THERAPY
     Dosage: 10 MILLIGRAM, ONCE A DAY
     Route: 065
     Dates: start: 201705
  3. SILDENAFIL. [Suspect]
     Active Substance: SILDENAFIL
     Indication: PULMONARY HYPERTENSION
     Dosage: 75 MILLIGRAM, 3 TIMES A DAY,25 MILLIGRAM, TID
     Route: 065
     Dates: start: 201807, end: 201807
  4. SILDENAFIL. [Suspect]
     Active Substance: SILDENAFIL
     Dosage: 225 MILLIGRAM(25 MG, TID)
     Route: 065
  5. SPIRONOLACTONE. [Suspect]
     Active Substance: SPIRONOLACTONE
     Indication: DIURETIC THERAPY
     Dosage: 25 MILLIGRAM, ONCE A DAY
     Route: 065
  6. RIOCIGUAT. [Concomitant]
     Active Substance: RIOCIGUAT
     Indication: PULMONARY HYPERTENSION
     Dosage: 2.5 MILLIGRAM, 3 TIMES A DAY
     Route: 065
  7. TORASEMIDE [Suspect]
     Active Substance: TORSEMIDE
     Indication: PULMONARY HYPERTENSION
     Dosage: 20 MILLIGRAM, ONCE A DAY
     Route: 065
     Dates: start: 201807
  8. ACENOCUMAROL [Suspect]
     Active Substance: ACENOCOUMAROL
     Indication: PULMONARY HYPERTENSION
     Dosage: UNK
     Route: 065
  9. ILOPROST. [Concomitant]
     Active Substance: ILOPROST
     Indication: PRODUCT USED FOR UNKNOWN INDICATION
     Dosage: UNK
     Route: 065
  10. METOPROLOL. [Suspect]
     Active Substance: METOPROLOL
     Indication: PULMONARY HYPERTENSION
     Dosage: 50 MILLIGRAM, ONCE A DAY
     Route: 065
  11. ACETYLSALICYLIC ACID [Suspect]
     Active Substance: ASPIRIN
     Indication: PRODUCT USED FOR UNKNOWN INDICATION
     Dosage: UNK
     Route: 065
     Dates: start: 201801
  12. SPIRONOLACTONE. [Suspect]
     Active Substance: SPIRONOLACTONE
     Indication: PULMONARY HYPERTENSION
     Dosage: 50 MILLIGRAM, ONCE A DAY
     Route: 065
     Dates: start: 201807
  13. RIOCIGUAT. [Concomitant]
     Active Substance: RIOCIGUAT
     Dosage: UNK
     Route: 065
     Dates: start: 201807

REACTIONS (9)
  - Bradycardia [Unknown]
  - Hypotension [Unknown]
  - Therapeutic product effect incomplete [Recovered/Resolved]
  - Condition aggravated [Recovered/Resolved]
  - Pulmonary hypertension [Recovering/Resolving]
  - Dyspnoea exertional [Recovering/Resolving]
  - Vascular resistance pulmonary decreased [Unknown]
  - Left-to-right cardiac shunt [Recovered/Resolved]
  - Off label use [Unknown]

NARRATIVE: CASE EVENT DATE: 2017
